FAERS Safety Report 19732008 (Version 5)
Quarter: 2021Q4

REPORT INFORMATION
  Report Type: Spontaneous
  Country: PE (occurrence: PE)
  Receive Date: 20210820
  Receipt Date: 20211119
  Transmission Date: 20220303
  Serious: Yes (Hospitalization, Other)
  Sender: FDA-Public Use
  Company Number: PE-009507513-2108PER005254

PATIENT
  Age: 85 Year
  Sex: Female

DRUGS (8)
  1. JANUMET [Suspect]
     Active Substance: METFORMIN HYDROCHLORIDE\SITAGLIPTIN PHOSPHATE
     Indication: Diabetes mellitus
     Dosage: 1 TABLET AT BREAKFAST
     Route: 048
     Dates: start: 2017, end: 202106
  2. JANUMET [Suspect]
     Active Substance: METFORMIN HYDROCHLORIDE\SITAGLIPTIN PHOSPHATE
     Dosage: 1 TABLET AT BREAKFAST AND 1 TABLET IN THE AFTERNOON
     Route: 048
     Dates: start: 2009, end: 2017
  3. JANUVIA [Suspect]
     Active Substance: SITAGLIPTIN PHOSPHATE
     Dosage: 1 TABLET BEFORE BREAKFAST
     Route: 048
     Dates: start: 202106
  4. TELMIPRES [Concomitant]
     Indication: Hypertension
     Dosage: 1 TABLET IN THE MORNING
     Route: 048
     Dates: start: 2018
  5. CAPTOPRIL [Concomitant]
     Active Substance: CAPTOPRIL
     Indication: Hypertension
     Dosage: UNK
     Route: 048
     Dates: start: 2018
  6. ASPIRIN [Concomitant]
     Active Substance: ASPIRIN
     Indication: Cardiovascular event prophylaxis
     Dosage: 1 TABLET EVERY OTHER DAY
     Route: 048
     Dates: start: 202107
  7. ASPIRIN [Concomitant]
     Active Substance: ASPIRIN
     Dosage: 1 TABLET EVERY DAY
     Route: 048
     Dates: start: 20210820
  8. OMEGA 3 CONCENTRATE [Concomitant]
     Indication: Routine health maintenance
     Dosage: 1 SOFT GEL IN THE MORNING
     Dates: start: 202104

REACTIONS (11)
  - Dementia Alzheimer^s type [Recovering/Resolving]
  - Vomiting [Recovered/Resolved]
  - Cataract [Unknown]
  - Hypoacusis [Unknown]
  - Peripheral arterial occlusive disease [Recovering/Resolving]
  - Oesophagitis [Recovered/Resolved]
  - Depression [Recovering/Resolving]
  - Tinnitus [Unknown]
  - Product prescribing issue [Unknown]
  - Incorrect dose administered [Unknown]
  - Inappropriate schedule of product administration [Unknown]

NARRATIVE: CASE EVENT DATE: 20140101
